FAERS Safety Report 7278451-X (Version None)
Quarter: 2011Q1

REPORT INFORMATION
  Report Type: 
  Country: None (occurrence: None)
  Receive Date: 20110207
  Receipt Date: 20110127
  Transmission Date: 20110831
  Serious: Yes (Other)
  Sender: FDA-Public Use
  Company Number: JP-PFIZER INC-2011009566

PATIENT
  Age: 72 Year
  Sex: Male

DRUGS (3)
  1. CASODEX [Concomitant]
     Dosage: UNK
     Route: 048
     Dates: start: 20100906, end: 20101129
  2. CASODEX [Concomitant]
     Dosage: UNK
     Dates: start: 20101229
  3. ESTRACYT [Suspect]
     Indication: PROSTATE CANCER
     Dosage: 470.1 MG/DAY
     Route: 048
     Dates: start: 20101130, end: 20101229

REACTIONS (4)
  - ASPARTATE AMINOTRANSFERASE INCREASED [None]
  - DECREASED APPETITE [None]
  - HEPATIC FUNCTION ABNORMAL [None]
  - ALANINE AMINOTRANSFERASE INCREASED [None]
